APPROVED DRUG PRODUCT: CAPOTEN
Active Ingredient: CAPTOPRIL
Strength: 75MG **Federal Register determination that product was not discontinued or withdrawn for safety or effectiveness reasons**
Dosage Form/Route: TABLET;ORAL
Application: N018343 | Product #007
Applicant: AARXION ANDA HOLDING LLC
Approved: Jun 13, 1995 | RLD: Yes | RS: No | Type: DISCN